FAERS Safety Report 10351629 (Version 1)
Quarter: 2014Q3

REPORT INFORMATION
  Report Type: Spontaneous
  Country: US (occurrence: US)
  Receive Date: 20140730
  Receipt Date: 20140730
  Transmission Date: 20150326
  Serious: Yes (Other)
  Sender: FDA-Public Use
  Company Number: US-PFIZER INC-2014211320

PATIENT
  Sex: Female

DRUGS (1)
  1. LYRICA [Suspect]
     Active Substance: PREGABALIN
     Indication: FIBROMYALGIA
     Dosage: UNK (75 MG IN MORNING AND 150 MG IN NIGHT)

REACTIONS (3)
  - Pre-existing condition improved [Unknown]
  - Weight increased [Unknown]
  - Therapeutic response changed [Unknown]
